FAERS Safety Report 8923848 (Version 1)
Quarter: 2012Q4

REPORT INFORMATION
  Report Type: 
  Country: US (occurrence: US)
  Receive Date: 20121126
  Receipt Date: 20121126
  Transmission Date: 20130627
  Serious: Yes (Other)
  Sender: FDA-Public Use
  Company Number: US-BAYER-2012-122555

PATIENT
  Age: 26 Year
  Sex: Female
  Weight: 49.89 kg

DRUGS (1)
  1. BAYER EXTRA STRENGTH BACK + BODY PAIN [Suspect]
     Indication: GENERAL BODY PAIN
     Dosage: 2 DF, Used Only One Time
     Route: 048
     Dates: start: 20121117, end: 20121117

REACTIONS (1)
  - Chest discomfort [Recovered/Resolved]
